FAERS Safety Report 6579204-8 (Version None)
Quarter: 2010Q1

REPORT INFORMATION
  Report Type: 
  Country: None (occurrence: None)
  Receive Date: 20100212
  Receipt Date: 20100129
  Transmission Date: 20100710
  Serious: Yes (Other)
  Sender: FDA-Public Use
  Company Number: US-TYCO HEALTHCARE/MALLINCKRODT-T201000556

PATIENT
  Age: 48 Year
  Sex: Female

DRUGS (4)
  1. RESTORIL [Suspect]
     Indication: INSOMNIA
     Dosage: UNK
     Dates: start: 20090101, end: 20090101
  2. LUNESTA [Suspect]
     Indication: INSOMNIA
     Dosage: 3
     Route: 048
     Dates: start: 20091201, end: 20091201
  3. XANAX [Concomitant]
     Dosage: UNK
  4. HYZAAR                             /01284801/ [Concomitant]
     Dosage: UNK

REACTIONS (3)
  - ANKLE FRACTURE [None]
  - DRUG INEFFECTIVE [None]
  - FEELING ABNORMAL [None]
